FAERS Safety Report 20638275 (Version 2)
Quarter: 2022Q4

REPORT INFORMATION
  Report Type: Spontaneous
  Country: FR (occurrence: FR)
  Receive Date: 20220325
  Receipt Date: 20221228
  Transmission Date: 20230112
  Serious: Yes (Hospitalization)
  Sender: FDA-Public Use
  Company Number: None

PATIENT
  Age: 63 Year
  Sex: Female
  Weight: 57 kg

DRUGS (2)
  1. SCANDONEST PLAIN [Suspect]
     Active Substance: MEPIVACAINE HYDROCHLORIDE
     Indication: Dental care
     Route: 053
     Dates: start: 20220208, end: 20220208
  2. ARTICAINE HYDROCHLORIDE [Suspect]
     Active Substance: ARTICAINE HYDROCHLORIDE
     Indication: Dental care
     Route: 053
     Dates: start: 20220216, end: 20220217

REACTIONS (1)
  - Reversible cerebral vasoconstriction syndrome [Recovering/Resolving]

NARRATIVE: CASE EVENT DATE: 20220208
